FAERS Safety Report 4979846-7 (Version None)
Quarter: 2006Q2

REPORT INFORMATION
  Report Type: 
  Country: None (occurrence: None)
  Receive Date: 20060421
  Receipt Date: 20050303
  Transmission Date: 20061013
  Serious: Yes (Hospitalization, Disabling)
  Sender: FDA-Public Use
  Company Number: US-MERCK-0503USA00808

PATIENT
  Age: 55 Year
  Sex: Male
  Weight: 89 kg

DRUGS (21)
  1. VIOXX [Suspect]
     Indication: ARTHRITIS
     Route: 048
     Dates: start: 19990101
  2. VIOXX [Suspect]
     Route: 048
     Dates: start: 20000101, end: 20040101
  3. LOPRESSOR [Concomitant]
     Route: 048
  4. TOPROL-XL [Concomitant]
     Route: 048
     Dates: start: 19960101
  5. PREVACID [Concomitant]
     Route: 048
  6. TAGAMET [Concomitant]
     Route: 065
  7. ELAVIL [Concomitant]
     Route: 048
     Dates: start: 19940101
  8. ELAVIL [Concomitant]
     Route: 048
  9. REMERON [Concomitant]
     Route: 048
  10. ASPIRIN [Concomitant]
     Route: 048
     Dates: start: 19960101, end: 20050101
  11. HYDRODIURIL [Concomitant]
     Indication: POLYURIA
     Route: 065
     Dates: start: 20010402
  12. HYDRODIURIL [Concomitant]
     Indication: CARDIAC DISORDER
     Route: 065
     Dates: start: 20010402
  13. NORVASC [Concomitant]
     Route: 065
     Dates: start: 20000814
  14. BACLOFEN [Concomitant]
     Route: 065
     Dates: start: 20030327
  15. BEXTRA [Concomitant]
     Route: 065
     Dates: start: 20020306
  16. CELEBREX [Concomitant]
     Route: 065
     Dates: start: 20020219
  17. ACETAMINOPHEN AND HYDROCODONE BITARTRATE [Concomitant]
     Route: 065
     Dates: start: 20020110
  18. IBUPROFEN [Concomitant]
     Route: 065
  19. METHOCARBAMOL [Concomitant]
     Route: 065
     Dates: start: 20011220
  20. NEURONTIN [Concomitant]
     Route: 065
     Dates: start: 20040322
  21. ULTRAM [Concomitant]
     Route: 065
     Dates: start: 20010209

REACTIONS (19)
  - ABDOMINAL PAIN UPPER [None]
  - ADVERSE EVENT [None]
  - ANHEDONIA [None]
  - ANXIETY [None]
  - BLOOD CHOLESTEROL INCREASED [None]
  - BLOOD TRIGLYCERIDES INCREASED [None]
  - CARDIAC DISORDER [None]
  - CEREBROVASCULAR ACCIDENT [None]
  - CHEST PAIN [None]
  - DEPRESSION [None]
  - DISTURBANCE IN SEXUAL AROUSAL [None]
  - DIZZINESS [None]
  - EAR PAIN [None]
  - INSOMNIA [None]
  - PAIN [None]
  - PHARYNGITIS [None]
  - SHOULDER PAIN [None]
  - SUICIDAL IDEATION [None]
  - TRANSIENT ISCHAEMIC ATTACK [None]
